FAERS Safety Report 12797419 (Version 4)
Quarter: 2017Q1

REPORT INFORMATION
  Report Type: Report from Study
  Country: DE (occurrence: DE)
  Receive Date: 20160930
  Receipt Date: 20170330
  Transmission Date: 20170428
  Serious: Yes (Other)
  Sender: FDA-Public Use
  Company Number: PHHY2016DE134400

PATIENT
  Sex: Male
  Weight: 69 kg

DRUGS (14)
  1. CANDESARTAN [Concomitant]
     Active Substance: CANDESARTAN
     Dosage: 12.5 MG, QD
  2. CANDESARTAN [Concomitant]
     Active Substance: CANDESARTAN
     Dosage: 32 MG, QD
     Route: 048
  3. VOTRIENT [Suspect]
     Active Substance: PAZOPANIB HYDROCHLORIDE
     Indication: METASTATIC RENAL CELL CARCINOMA
     Dosage: 800 MG, QD
     Route: 048
     Dates: start: 20160613, end: 20160721
  4. CANDESARTAN [Concomitant]
     Active Substance: CANDESARTAN
     Dosage: 12.5 MG, QD
     Route: 048
     Dates: start: 2004
  5. METFORMIN [Concomitant]
     Active Substance: METFORMIN HYDROCHLORIDE
     Indication: TYPE 2 DIABETES MELLITUS
     Dosage: 500 MG, BID
     Route: 048
     Dates: start: 2003
  6. CANDESARTAN [Concomitant]
     Active Substance: CANDESARTAN
     Indication: HYPERTENSION
     Dosage: 8 MG, QD
     Route: 048
     Dates: start: 2004
  7. VOTRIENT [Suspect]
     Active Substance: PAZOPANIB HYDROCHLORIDE
     Dosage: 200 MG, QD
     Route: 048
     Dates: start: 20160722, end: 20161013
  8. CANDESARTAN [Concomitant]
     Active Substance: CANDESARTAN
     Dosage: 12.5 MG, QD
     Route: 048
  9. VOTRIENT [Suspect]
     Active Substance: PAZOPANIB HYDROCHLORIDE
     Dosage: 400 MG, QD
     Route: 048
     Dates: start: 20161014
  10. MARCUMAR [Concomitant]
     Active Substance: PHENPROCOUMON
     Indication: POOR PERIPHERAL CIRCULATION
     Dosage: UNK
     Route: 048
  11. CANDESARTAN [Concomitant]
     Active Substance: CANDESARTAN
     Dosage: 16 MG, QD
     Route: 048
  12. CANDESARTAN [Concomitant]
     Active Substance: CANDESARTAN
     Dosage: 32 MG, QD
  13. CANDESARTAN [Concomitant]
     Active Substance: CANDESARTAN
     Dosage: 25 MG, QD
  14. CANDESARTAN [Concomitant]
     Active Substance: CANDESARTAN
     Dosage: 16 MG, QD
     Route: 048

REACTIONS (3)
  - Hepatitis cholestatic [Recovering/Resolving]
  - Fatigue [Unknown]
  - Diarrhoea [Recovering/Resolving]

NARRATIVE: CASE EVENT DATE: 20160719
